FAERS Safety Report 8006992-6 (Version None)
Quarter: 2011Q4

REPORT INFORMATION
  Report Type: 
  Country: None (occurrence: None)
  Receive Date: 20111227
  Receipt Date: 20111219
  Transmission Date: 20120403
  Serious: Yes (Hospitalization, Other)
  Sender: FDA-Public Use
  Company Number: PHHY2011JP108862

PATIENT
  Age: 70 Year
  Sex: Female

DRUGS (3)
  1. CARBOPLATIN [Suspect]
     Indication: LARGE CELL CARCINOMA OF THE RESPIRATORY TRACT STAGE UNSPECIFIED
  2. AMPICILLIN AND SULBACTAM [Suspect]
     Indication: PNEUMONIA
  3. PEMETREXED [Suspect]
     Indication: LARGE CELL CARCINOMA OF THE RESPIRATORY TRACT STAGE UNSPECIFIED

REACTIONS (9)
  - PNEUMONIA [None]
  - DYSAESTHESIA [None]
  - EYELID PTOSIS [None]
  - MILLER FISHER SYNDROME [None]
  - GAIT DISTURBANCE [None]
  - DYSPHONIA [None]
  - MUSCULAR WEAKNESS [None]
  - DIPLOPIA [None]
  - PUPILLARY REFLEX IMPAIRED [None]
